FAERS Safety Report 6510651-6 (Version None)
Quarter: 2009Q4

REPORT INFORMATION
  Report Type: 
  Country: None (occurrence: None)
  Receive Date: 20091222
  Receipt Date: 20091013
  Transmission Date: 20100525
  Serious: No
  Sender: FDA-Public Use
  Company Number: US-ASTRAZENECA-2009SE19870

PATIENT
  Sex: Female

DRUGS (5)
  1. CRESTOR [Suspect]
     Indication: BLOOD CHOLESTEROL INCREASED
     Route: 048
     Dates: start: 20090901
  2. XANAX [Concomitant]
  3. PROTONICS [Concomitant]
     Indication: GASTROOESOPHAGEAL REFLUX DISEASE
  4. DIAZIDE [Concomitant]
     Indication: HYPERTENSION
  5. ACTONEL [Concomitant]
     Indication: OSTEOPOROSIS

REACTIONS (1)
  - PAIN IN EXTREMITY [None]
